FAERS Safety Report 11839669 (Version 2)
Quarter: 2015Q4

REPORT INFORMATION
  Report Type: Spontaneous
  Country: US (occurrence: US)
  Receive Date: 20151216
  Receipt Date: 20151217
  Transmission Date: 20160305
  Serious: No
  Sender: FDA-Public Use
  Company Number: US-PFIZER INC-2015398737

PATIENT
  Age: 63 Year
  Sex: Female
  Weight: 76 kg

DRUGS (3)
  1. EXEMESTANE. [Suspect]
     Active Substance: EXEMESTANE
     Dosage: UNK
     Dates: start: 201509
  2. TARCEVA [Suspect]
     Active Substance: ERLOTINIB HYDROCHLORIDE
     Dosage: 50 MG, DAILY (25 MG TABLET TAKE 2 TABLETS EVERY DAY EMPTY STOMACH 1 HR BEFORE OR 2 HRS AFTER FOOD)
     Route: 048
     Dates: start: 201509
  3. IBRANCE [Suspect]
     Active Substance: PALBOCICLIB
     Dosage: 125 MG, CYCLIC(21 DAYS THEN 7 DAYS OFF)
     Route: 048
     Dates: start: 201509

REACTIONS (2)
  - Weight decreased [Unknown]
  - Product use issue [Unknown]
